FAERS Safety Report 9965323 (Version 1)
Quarter: 2014Q1

REPORT INFORMATION
  Report Type: Report from Study
  Country: US (occurrence: US)
  Receive Date: 20140305
  Receipt Date: 20140305
  Transmission Date: 20141002
  Serious: No
  Sender: FDA-Public Use
  Company Number: US-ABBVIE-13P-163-1124487-00

PATIENT
  Sex: Male
  Weight: 97.61 kg

DRUGS (5)
  1. HUMIRA [Suspect]
     Indication: CROHN^S DISEASE
     Dates: start: 2006, end: 2006
  2. HUMIRA [Suspect]
     Dates: end: 201211
  3. HUMIRA [Suspect]
     Dates: start: 201211
  4. TRAMADOL [Concomitant]
     Indication: ARTHRALGIA
  5. TRAMADOL [Concomitant]
     Indication: CROHN^S DISEASE

REACTIONS (2)
  - Crohn^s disease [Unknown]
  - Abdominal pain lower [Recovered/Resolved]
